FAERS Safety Report 9361158 (Version 1)
Quarter: 2013Q2

REPORT INFORMATION
  Report Type: Spontaneous
  Country: CA (occurrence: CA)
  Receive Date: 20130621
  Receipt Date: 20130621
  Transmission Date: 20140414
  Serious: Yes (Hospitalization, Other)
  Sender: FDA-Public Use
  Company Number: CA-ROCHE-1238105

PATIENT
  Sex: Female

DRUGS (2)
  1. XOLAIR [Suspect]
     Indication: ASTHMA
     Route: 058
     Dates: start: 20130517
  2. XOLAIR [Suspect]
     Route: 058
     Dates: start: 20130611

REACTIONS (5)
  - Urinary tract infection [Unknown]
  - Throat tightness [Unknown]
  - Vertigo [Unknown]
  - Malaise [Unknown]
  - Pruritus [Unknown]
